FAERS Safety Report 6379291-6 (Version None)
Quarter: 2009Q3

REPORT INFORMATION
  Report Type: 
  Country: None (occurrence: None)
  Receive Date: 20090923
  Receipt Date: 20090923
  Transmission Date: 20100115
  Serious: Yes (Life-Threatening)
  Sender: FDA-Public Use
  Company Number: None

PATIENT
  Age: 49 Year
  Sex: Male
  Weight: 87.1 kg

DRUGS (3)
  1. ISOPHANE INSULIN 70/30 [Suspect]
     Indication: TYPE 2 DIABETES MELLITUS
     Dosage: 20 UNITS SQ BID
     Route: 058
  2. RANITIDINE [Concomitant]
  3. ASPIRIN [Concomitant]

REACTIONS (5)
  - CHEST PAIN [None]
  - FALL [None]
  - HYPERGLYCAEMIA [None]
  - SYNCOPE [None]
  - TREATMENT NONCOMPLIANCE [None]
